FAERS Safety Report 25653170 (Version 1)
Quarter: 2025Q3

REPORT INFORMATION
  Report Type: Spontaneous
  Country: US (occurrence: US)
  Receive Date: 20250807
  Receipt Date: 20250807
  Transmission Date: 20251020
  Serious: No
  Sender: MANNKIND
  Company Number: US-MANNKIND CORP-2025MK000042

PATIENT
  Age: 58 Year
  Sex: Female

DRUGS (1)
  1. AFREZZA [Suspect]
     Active Substance: INSULIN HUMAN
     Indication: Type 1 diabetes mellitus
     Dates: start: 20250624

REACTIONS (2)
  - Dry throat [Unknown]
  - Cough [Unknown]

NARRATIVE: CASE EVENT DATE: 20250624
